FAERS Safety Report 20266280 (Version 1)
Quarter: 2021Q4

REPORT INFORMATION
  Report Type: Spontaneous
  Country: US (occurrence: US)
  Receive Date: 20211231
  Receipt Date: 20211231
  Transmission Date: 20220304
  Serious: Yes (Other)
  Sender: FDA-Public Use
  Company Number: US-NOVARTISPH-NVSC2021US297567

PATIENT
  Age: 11 Year
  Sex: Female

DRUGS (13)
  1. SOMATROPIN [Suspect]
     Active Substance: SOMATROPIN
     Indication: Pituitary hypoplasia
     Dosage: 0.8 MG, QD
     Route: 065
  2. SOMATROPIN [Suspect]
     Active Substance: SOMATROPIN
     Dosage: 0.3 MG, QD (LOWER DOSE)
     Route: 065
  3. SOMATROPIN [Suspect]
     Active Substance: SOMATROPIN
     Dosage: 0.5 MG, QD (INCREASED)
     Route: 065
  4. SOMATROPIN [Suspect]
     Active Substance: SOMATROPIN
     Dosage: 0.3 MG, QD (REDUCED)
     Route: 065
  5. SOMATROPIN [Suspect]
     Active Substance: SOMATROPIN
     Dosage: 0.8 MG, QD (INCREMENTALLY INCREASED)
     Route: 065
  6. SOMATROPIN [Suspect]
     Active Substance: SOMATROPIN
     Dosage: 0.7 MG, QD
     Route: 065
  7. SOMATROPIN [Suspect]
     Active Substance: SOMATROPIN
     Dosage: 0.4 MG, QD
     Route: 065
  8. SOMATROPIN [Suspect]
     Active Substance: SOMATROPIN
     Dosage: 0.8 MG, QD (INCREMENTALLY INCREASED)
     Route: 065
  9. SOMATROPIN [Suspect]
     Active Substance: SOMATROPIN
     Dosage: 0.4 MG, QD (REDUCED)
     Route: 065
  10. SOMATROPIN [Suspect]
     Active Substance: SOMATROPIN
     Dosage: 0.8 MG, QD
     Route: 065
  11. SOMATROPIN [Suspect]
     Active Substance: SOMATROPIN
     Dosage: 0.9 MG, QD
     Route: 065
  12. HYDROCORTISONE [Concomitant]
     Active Substance: HYDROCORTISONE
     Indication: Pituitary hypoplasia
     Dosage: UNK UNK, UNKNOWN
     Route: 065
  13. LEVOTHYROXINE [Concomitant]
     Active Substance: LEVOTHYROXINE
     Indication: Pituitary hypoplasia
     Dosage: UNK UNK, UNKNOWN
     Route: 065

REACTIONS (2)
  - Idiopathic intracranial hypertension [Recovering/Resolving]
  - Product use in unapproved indication [Unknown]
